FAERS Safety Report 19693761 (Version 1)
Quarter: 2021Q3

REPORT INFORMATION
  Report Type: Spontaneous
  Country: IN (occurrence: IN)
  Receive Date: 20210812
  Receipt Date: 20210812
  Transmission Date: 20211014
  Serious: Yes (Death, Other)
  Sender: FDA-Public Use
  Company Number: IN-PFIZER INC-2018424371

PATIENT
  Age: 50 Year
  Sex: Female

DRUGS (6)
  1. PALBACE [Suspect]
     Active Substance: PALBOCICLIB
     Indication: BREAST CANCER METASTATIC
     Dosage: 125 MG, CYCLIC (X 21 DAYS/ 30DAYS/DAILY FOR 21 DAYS IN 1 MONTHS FOR 6 MONTHS)
     Route: 048
     Dates: start: 20180205, end: 2018
  2. FEMARA [Concomitant]
     Active Substance: LETROZOLE
     Dosage: 2.5 MG, 1X/DAY
     Dates: start: 201802
  3. ZOLDONAT [Concomitant]
     Dosage: 4 MG, MONTHLY (ONCE A MONTH)
     Dates: start: 201808
  4. SHELCAL [Concomitant]
     Active Substance: CALCIUM CARBONATE\CHOLECALCIFEROL
     Dosage: 500 MG, 1X/DAY
     Dates: start: 201802
  5. PALBACE [Suspect]
     Active Substance: PALBOCICLIB
     Dosage: 125 MG, 1X/DAY (OD)
     Route: 048
     Dates: start: 20181030
  6. ZOLDONAT [Concomitant]
     Dosage: UNK
     Dates: start: 201802

REACTIONS (8)
  - Death [Fatal]
  - Oral disorder [Unknown]
  - Neoplasm progression [Unknown]
  - Eye pain [Unknown]
  - Eye swelling [Unknown]
  - Somnolence [Unknown]
  - Trismus [Unknown]
  - Skin irritation [Unknown]

NARRATIVE: CASE EVENT DATE: 20210721
